FAERS Safety Report 7028672-6 (Version None)
Quarter: 2010Q4

REPORT INFORMATION
  Report Type: 
  Country: None (occurrence: None)
  Receive Date: 20101005
  Receipt Date: 20100120
  Transmission Date: 20110411
  Serious: Yes (Death)
  Sender: FDA-Public Use
  Company Number: US-SANOFI-AVENTIS-2010SA001083

PATIENT
  Age: 69 Year
  Sex: Male
  Weight: 87.6 kg

DRUGS (26)
  1. DOCETAXEL [Suspect]
     Indication: PROSTATE CANCER
     Route: 042
     Dates: start: 20090828, end: 20090828
  2. DOCETAXEL [Suspect]
     Route: 042
     Dates: start: 20090122, end: 20090122
  3. BLINDED THERAPY [Suspect]
     Indication: PROSTATE CANCER
     Route: 048
     Dates: start: 20090122, end: 20090908
  4. PREDNISONE [Suspect]
     Indication: PROSTATE CANCER
     Route: 048
     Dates: start: 20090122, end: 20090908
  5. DEXAMETHASONE [Suspect]
     Indication: PREMEDICATION
     Dates: start: 20090122, end: 20090828
  6. DILAUDID [Concomitant]
  7. LYRICA [Concomitant]
     Route: 048
  8. DURAGESIC-100 [Concomitant]
  9. FAMVIR /UNK/ [Concomitant]
     Route: 048
  10. MEDROL [Concomitant]
  11. ZOVIRAX [Concomitant]
  12. LORTAB [Concomitant]
     Route: 048
  13. ATIVAN [Concomitant]
     Indication: NAUSEA
     Route: 048
  14. ZOFRAN [Concomitant]
     Route: 048
  15. COMPAZINE [Concomitant]
     Indication: NAUSEA
     Route: 048
  16. MICARDIS [Concomitant]
     Route: 048
  17. NITROSTAT [Concomitant]
  18. ASPIRIN [Concomitant]
     Route: 048
  19. REQUIP [Concomitant]
     Route: 048
  20. CYMBALTA [Concomitant]
     Route: 048
  21. FLOMAX [Concomitant]
     Route: 048
  22. LEVAQUIN [Concomitant]
  23. METOPROLOL [Concomitant]
  24. PROPRANOLOL [Concomitant]
  25. RESTORIL [Concomitant]
  26. PERCOCET [Concomitant]

REACTIONS (1)
  - MULTI-ORGAN FAILURE [None]
